FAERS Safety Report 5930817-3 (Version None)
Quarter: 2008Q4

REPORT INFORMATION
  Report Type: 
  Country: None (occurrence: None)
  Receive Date: 20081027
  Receipt Date: 20081020
  Transmission Date: 20090506
  Serious: Yes (Disabling)
  Sender: FDA-Public Use
  Company Number: JP-ABBOTT-08P-087-0483442-00

PATIENT
  Age: 43 Year
  Sex: Female

DRUGS (2)
  1. LEUPROLIDE ACETATE [Suspect]
     Indication: ENDOMETRIOSIS
     Route: 058
     Dates: end: 20060101
  2. LEUPROLIDE ACETATE [Suspect]
     Indication: UTERINE LEIOMYOMA

REACTIONS (1)
  - FACIAL PALSY [None]
